FAERS Safety Report 6309265-2 (Version None)
Quarter: 2009Q3

REPORT INFORMATION
  Report Type: 
  Country: None (occurrence: None)
  Receive Date: 20090814
  Receipt Date: 20090804
  Transmission Date: 20100115
  Serious: Yes (Other)
  Sender: FDA-Public Use
  Company Number: HK-PFIZER INC-2008078686

PATIENT
  Age: 42 Year

DRUGS (3)
  1. MARAVIROC [Suspect]
     Indication: HIV TEST POSITIVE
     Dosage: 150 MG, 2X/DAY
     Route: 048
     Dates: start: 20080312
  2. RALTEGRAVIR [Suspect]
     Indication: HIV TEST POSITIVE
     Route: 048
     Dates: start: 20080312
  3. DICLOFENAC SODIUM [Concomitant]
     Route: 048
     Dates: start: 20080731

REACTIONS (1)
  - BLOOD ALKALINE PHOSPHATASE INCREASED [None]
